FAERS Safety Report 16431254 (Version 1)
Quarter: 2019Q2

REPORT INFORMATION
  Report Type: Report from Study
  Country: US (occurrence: US)
  Receive Date: 20190614
  Receipt Date: 20190614
  Transmission Date: 20190711
  Serious: Yes (Other)
  Sender: FDA-Public Use
  Company Number: US-PFIZER INC-2019254529

PATIENT
  Age: 70 Year
  Sex: Male

DRUGS (4)
  1. BETADINE [Concomitant]
     Active Substance: POVIDONE-IODINE
     Dosage: UNK
  2. LIDOCAINE. [Concomitant]
     Active Substance: LIDOCAINE
     Dosage: UNK, (PLEDGETS)
  3. METHOTREXATE SODIUM. [Suspect]
     Active Substance: METHOTREXATE SODIUM
     Indication: RETINOPATHY PROLIFERATIVE
     Dosage: UNK, (100 UG/0.05 ML, LOW-DOSE INTRAVITREAL INJECTIONS, EVERY 2 WEEKS)
  4. METHOTREXATE SODIUM. [Suspect]
     Active Substance: METHOTREXATE SODIUM
     Indication: RETINAL DETACHMENT

REACTIONS (1)
  - Punctate keratitis [Recovered/Resolved]
